FAERS Safety Report 12257316 (Version 1)
Quarter: 2016Q2

REPORT INFORMATION
  Report Type: Spontaneous
  Country: US (occurrence: US)
  Receive Date: 20160412
  Receipt Date: 20160412
  Transmission Date: 20160815
  Serious: No
  Sender: FDA-Public Use
  Company Number: US-BAYER-2016-069420

PATIENT
  Age: 81 Year
  Sex: Female
  Weight: 63.49 kg

DRUGS (2)
  1. PAIN STOPPER EXTRA [Suspect]
     Active Substance: ACETAMINOPHEN\ASPIRIN\CAFFEINE\SALICYLAMIDE
     Indication: ANALGESIC THERAPY
     Dosage: 1 DF, EVERY 5 HOURS
     Route: 048
  2. ALEVE [Suspect]
     Active Substance: NAPROXEN SODIUM
     Indication: ANALGESIC THERAPY
     Route: 048

REACTIONS (2)
  - Restless legs syndrome [None]
  - Product use issue [None]
